FAERS Safety Report 17910893 (Version 1)
Quarter: 2020Q2

REPORT INFORMATION
  Report Type: Spontaneous
  Country: US (occurrence: US)
  Receive Date: 20200617
  Receipt Date: 20200617
  Transmission Date: 20200714
  Serious: Yes (Other)
  Sender: FDA-Public Use
  Company Number: None

PATIENT
  Age: 67 Year
  Sex: Male
  Weight: 106.4 kg

DRUGS (14)
  1. FUROSEMIDE 40MG IV X 1 [Concomitant]
     Dates: start: 20200611, end: 20200611
  2. ACETAMINOPHEN 1G IV Q6H PRN [Concomitant]
     Dates: start: 20200610, end: 20200613
  3. FENTANYL CONTINUOUS IV [Concomitant]
     Dates: start: 20200611
  4. ALBUMIN 25% 25G IV X 1 [Concomitant]
     Dates: start: 20200611, end: 20200611
  5. MIDAZOLAM CONTINUOUS IV [Concomitant]
     Dates: start: 20200611
  6. CEFTRIAXONE 1G IV DAILY [Concomitant]
     Dates: start: 20200606, end: 20200613
  7. PHENYEPHRINE CONTINUOUS IV [Concomitant]
     Dates: start: 20200611, end: 20200612
  8. INSULIN LISPRO SQ PER PROTOCOL [Concomitant]
     Dates: start: 20200609
  9. REMDESIVIR 5MG/ML INJECTION - EUA [Suspect]
     Active Substance: REMDESIVIR
     Indication: COVID-19
     Route: 041
     Dates: start: 20200611, end: 20200611
  10. FAMOTIDINE 20MG IV DAILY [Concomitant]
     Dates: start: 20200611, end: 20200615
  11. GABAPENTIN 100MG PO DAILY [Concomitant]
     Dates: start: 20200606, end: 20200614
  12. REMDESIVIR 5MG/ML INJECTION - EUA [Suspect]
     Active Substance: REMDESIVIR
     Indication: COVID-19
     Dosage: ?          OTHER FREQUENCY:ONCE;?
     Route: 041
     Dates: start: 20200610, end: 20200610
  13. PROPOFOL CONTINUOUS IV [Concomitant]
     Dates: start: 20200611, end: 20200613
  14. ASPIRIN 81MG ORAL DAILY [Concomitant]
     Dates: start: 20200607

REACTIONS (4)
  - Haemodialysis [None]
  - Hypotension [None]
  - Renal impairment [None]
  - Septic shock [None]

NARRATIVE: CASE EVENT DATE: 20200612
